FAERS Safety Report 21862033 (Version 3)
Quarter: 2023Q1

REPORT INFORMATION
  Report Type: Report from Study
  Country: US (occurrence: US)
  Receive Date: 20230113
  Receipt Date: 20230201
  Transmission Date: 20230418
  Serious: Yes (Death, Hospitalization)
  Sender: FDA-Public Use
  Company Number: US-ABBVIE-4268949

PATIENT
  Age: 75 Year
  Sex: Male
  Weight: 63 kg

DRUGS (9)
  1. DUOPA [Suspect]
     Active Substance: CARBIDOPA\LEVODOPA
     Indication: Parkinson^s disease
     Route: 050
     Dates: start: 202108
  2. DUOPA [Suspect]
     Active Substance: CARBIDOPA\LEVODOPA
  3. ATIVAN [Concomitant]
     Active Substance: LORAZEPAM
     Indication: Hallucination
  4. LEXAPRO [Concomitant]
     Active Substance: ESCITALOPRAM OXALATE
     Indication: Product used for unknown indication
  5. GABAPENTIN [Concomitant]
     Active Substance: GABAPENTIN
     Indication: Product used for unknown indication
  6. HALDOL [Concomitant]
     Active Substance: HALOPERIDOL
     Indication: Hallucination
  7. MORPHINE [Concomitant]
     Active Substance: MORPHINE
     Indication: Pain
  8. FINASTERIDE [Concomitant]
     Active Substance: FINASTERIDE
     Indication: Product used for unknown indication
  9. LEVOTHYROXINE [Concomitant]
     Active Substance: LEVOTHYROXINE
     Indication: Product used for unknown indication
     Route: 048

REACTIONS (8)
  - Parkinson^s disease [Fatal]
  - Throat cancer [Fatal]
  - Dyskinesia [Unknown]
  - Feeding disorder [Unknown]
  - Urinary tract infection [Unknown]
  - Dysstasia [Unknown]
  - Hallucination [Unknown]
  - Mobility decreased [Unknown]

NARRATIVE: CASE EVENT DATE: 20221101
